FAERS Safety Report 11151973 (Version 1)
Quarter: 2015Q2

REPORT INFORMATION
  Report Type: Spontaneous
  Country: US (occurrence: None)
  Receive Date: 20150529
  Receipt Date: 20150529
  Transmission Date: 20150821
  Serious: No
  Sender: FDA-Public Use
  Company Number: None

PATIENT
  Age: 66 Year
  Sex: Female
  Weight: 65.77 kg

DRUGS (6)
  1. MULTICAPS WITH LUTEIN [Concomitant]
  2. COQ10 [Concomitant]
     Active Substance: UBIDECARENONE
  3. CALCIUM CITRATE WITH VITAMIN D (CALCIUM CITRATE 630 MGS; VIT D 400 IU) [Concomitant]
  4. LYCOPINE (NO IRON, VEGETARIAN) [Concomitant]
  5. ATORVASTATIN 80 MGS DR. REDDY^S LAB [Suspect]
     Active Substance: ATORVASTATIN
     Indication: BLOOD CHOLESTEROL INCREASED
     Route: 048
     Dates: start: 20150501, end: 20150524
  6. AMLODIPINE 10 MGS [Concomitant]

REACTIONS (7)
  - Pyrexia [None]
  - Discomfort [None]
  - Myalgia [None]
  - Hepatic function abnormal [None]
  - Back pain [None]
  - Abdominal pain upper [None]
  - Night sweats [None]

NARRATIVE: CASE EVENT DATE: 20150525
